FAERS Safety Report 11910495 (Version 1)
Quarter: 2016Q1

REPORT INFORMATION
  Report Type: Spontaneous
  Country: US (occurrence: None)
  Receive Date: 20160111
  Receipt Date: 20160111
  Transmission Date: 20160526
  Serious: Yes (Other)
  Sender: FDA-Public Use
  Company Number: None

PATIENT
  Age: 65 Year
  Sex: Female

DRUGS (2)
  1. FORTEO [Suspect]
     Active Substance: TERIPARATIDE
     Indication: OSTEOPOROSIS
     Dosage: SHIPPED 10/14/15 - 1/15?600 MCG/2.4ML PEN
     Route: 058
  2. FORTEO [Suspect]
     Active Substance: TERIPARATIDE

REACTIONS (4)
  - Arthralgia [None]
  - Weight increased [None]
  - Hallucination [None]
  - Headache [None]

NARRATIVE: CASE EVENT DATE: 20160108
